FAERS Safety Report 9639928 (Version 1)
Quarter: 2013Q4

REPORT INFORMATION
  Report Type: Spontaneous
  Country: US (occurrence: US)
  Receive Date: 20131023
  Receipt Date: 20131023
  Transmission Date: 20140711
  Serious: Yes (Hospitalization, Other)
  Sender: FDA-Public Use
  Company Number: US-MYLANLABS-2013S1008459

PATIENT
  Age: 68 Year
  Sex: Male
  Weight: 99.79 kg

DRUGS (5)
  1. CARVEDILOL TABLETS [Suspect]
     Indication: BLOOD PRESSURE INCREASED
     Route: 048
     Dates: start: 2012, end: 201210
  2. CARVEDILOL TABLETS [Suspect]
     Indication: BLOOD PRESSURE INCREASED
     Route: 048
     Dates: start: 201210, end: 201211
  3. DIOVAN [Concomitant]
     Indication: BLOOD PRESSURE INCREASED
     Route: 048
     Dates: start: 2011
  4. DIGOXIN [Concomitant]
     Indication: CARDIAC FAILURE
     Route: 048
  5. SPIRONOLACTONE [Concomitant]
     Indication: OEDEMA
     Route: 048

REACTIONS (1)
  - Hypotension [Recovered/Resolved]
